FAERS Safety Report 7570905-1 (Version None)
Quarter: 2011Q2

REPORT INFORMATION
  Report Type: 
  Country: None (occurrence: None)
  Receive Date: 20110622
  Receipt Date: 20110622
  Transmission Date: 20111010
  Serious: Yes (Other)
  Sender: FDA-Public Use
  Company Number: None

PATIENT
  Age: 72 Year
  Sex: Female
  Weight: 79.3795 kg

DRUGS (1)
  1. LATANOPROST [Suspect]
     Dosage: ONE DROP NIGHTLY DROPPER RIGHT EYE ONLY
     Dates: start: 20110422, end: 20110612

REACTIONS (9)
  - DEAFNESS TRANSITORY [None]
  - PAIN IN EXTREMITY [None]
  - DRY THROAT [None]
  - DEAFNESS UNILATERAL [None]
  - MUSCULOSKELETAL PAIN [None]
  - ARTHRITIS [None]
  - CERUMEN IMPACTION [None]
  - DRY MOUTH [None]
  - HEADACHE [None]
